FAERS Safety Report 5765404-3 (Version None)
Quarter: 2008Q2

REPORT INFORMATION
  Report Type: 
  Country: None (occurrence: None)
  Receive Date: 20080611
  Receipt Date: 20080606
  Transmission Date: 20081010
  Serious: Yes (Other)
  Sender: FDA-Public Use
  Company Number: US-BAYER-200713052BCC

PATIENT
  Age: 74 Year
  Sex: Female
  Weight: 54 kg

DRUGS (6)
  1. ALEVE [Suspect]
     Indication: PAIN
     Dosage: UNIT DOSE: 220 MG
     Route: 048
     Dates: start: 20040101
  2. NORVASC [Concomitant]
  3. OXYBUTIN [Concomitant]
  4. AZO GANTRISIN [Concomitant]
  5. UNKNOWN THYROID MEDICATION [Concomitant]
  6. ASPIRIN [Concomitant]
     Indication: BONE PAIN
     Dosage: TOTAL DAILY DOSE: 1300 MG  UNIT DOSE: 325 MG
     Route: 048
     Dates: start: 19970101

REACTIONS (3)
  - DEPRESSION [None]
  - DRY SKIN [None]
  - WEIGHT DECREASED [None]
